FAERS Safety Report 9716544 (Version 9)
Quarter: 2014Q2

REPORT INFORMATION
  Report Type: Spontaneous
  Country: US (occurrence: US)
  Receive Date: 20131127
  Receipt Date: 20140409
  Transmission Date: 20141212
  Serious: Yes (Other)
  Sender: FDA-Public Use
  Company Number: US-PFIZER INC-2013335501

PATIENT
  Age: 56 Year
  Sex: Female
  Weight: 83.9 kg

DRUGS (11)
  1. SUTENT [Suspect]
     Indication: RENAL CELL CARCINOMA
     Dosage: 50 MG, DAILY
     Route: 048
     Dates: start: 20131021, end: 20131123
  2. SUTENT [Suspect]
     Dosage: 37.5 MG, DAILY
     Dates: start: 20131206
  3. SUTENT [Suspect]
     Dosage: 37.5 MG (3 TABS), DAILY, 2 WEEKS ON AND 1 WEEK OFF)
     Route: 048
     Dates: start: 20140226, end: 20140305
  4. PEPCID [Concomitant]
     Dosage: 40 MG, 2X/DAY (TAKE 1 TAB TWICE DAILY)
     Route: 048
  5. XANAX [Concomitant]
     Dosage: 0.5 MG, AS NEEDED (TAKE 0.5 MG TWICE DAILY AS NEEDED)
     Route: 048
  6. ATENOLOL [Concomitant]
     Dosage: 25 MG, 1X/DAY (TAKE 1 TAB DAILY)
     Route: 048
  7. NEURONTIN [Concomitant]
     Dosage: 100 MG, 3X/DAY (TAKE 1 CAP THREE TIMES DAILY)
     Route: 048
  8. TENORMIN [Concomitant]
     Dosage: 25 MG, TAKE 1 TAB DAILY
     Route: 048
  9. NORCO [Concomitant]
     Indication: PAIN
     Dosage: 5MG/325MG TAB TAKE 1-2 TABS FOUR TIMES DAILY AS NEEDED, MAX 8 TABLET/DAY)
     Route: 048
  10. ALPRAZOLAM [Concomitant]
     Dosage: 0.5 MG, DAILY
  11. NORVASC [Concomitant]
     Dosage: 2.5 MG, DAILY (TAKE 1 TAB DAILY)
     Route: 048

REACTIONS (11)
  - Hypertension [Unknown]
  - Pancreatitis [Recovered/Resolved]
  - Diarrhoea [Recovered/Resolved]
  - Glossodynia [Not Recovered/Not Resolved]
  - Dyspepsia [Recovered/Resolved]
  - Chest pain [Not Recovered/Not Resolved]
  - Pain [Unknown]
  - Procedural pain [Not Recovered/Not Resolved]
  - Paraesthesia [Not Recovered/Not Resolved]
  - Palmar-plantar erythrodysaesthesia syndrome [Recovering/Resolving]
  - Blood glucose increased [Unknown]
